FAERS Safety Report 5898601-7 (Version None)
Quarter: 2008Q3

REPORT INFORMATION
  Report Type: 
  Country: None (occurrence: None)
  Receive Date: 20080925
  Receipt Date: 20080208
  Transmission Date: 20090109
  Serious: No
  Sender: FDA-Public Use
  Company Number: A0709786A

PATIENT
  Sex: Female

DRUGS (1)
  1. WELLBUTRIN XL [Suspect]
     Indication: DRUG USE FOR UNKNOWN INDICATION
     Dates: start: 20080101

REACTIONS (4)
  - ANXIETY [None]
  - RASH [None]
  - RASH ERYTHEMATOUS [None]
  - TREMOR [None]
